FAERS Safety Report 12046963 (Version 2)
Quarter: 2016Q2

REPORT INFORMATION
  Report Type: Spontaneous
  Country: JP (occurrence: JP)
  Receive Date: 20160209
  Receipt Date: 20160408
  Transmission Date: 20160815
  Serious: Yes (Hospitalization, Other)
  Sender: FDA-Public Use
  Company Number: JP-ROCHE-1708378

PATIENT
  Age: 72 Year
  Sex: Female
  Weight: 56 kg

DRUGS (5)
  1. 5-FU [Concomitant]
     Active Substance: FLUOROURACIL
     Route: 041
     Dates: start: 20160130
  2. AVASTIN [Suspect]
     Active Substance: BEVACIZUMAB
     Indication: COLON CANCER
     Dosage: TREATMENT LINE 1ST?COMPLETED TREATMENT CYCLE NUMBER: 1
     Route: 041
     Dates: start: 20160130, end: 20160130
  3. CALCIUM LEVOFOLINATE [Concomitant]
     Active Substance: LEVOLEUCOVORIN CALCIUM
     Indication: COLON CANCER
     Route: 041
     Dates: start: 20160130
  4. ELPLAT [Concomitant]
     Active Substance: OXALIPLATIN
     Indication: COLON CANCER
     Route: 041
     Dates: start: 20160130
  5. 5-FU [Concomitant]
     Active Substance: FLUOROURACIL
     Indication: COLON CANCER
     Dosage: DOSAGE IS UNCERTAIN.
     Route: 040
     Dates: start: 20160130

REACTIONS (2)
  - Ureteric perforation [Recovered/Resolved]
  - Ileus [Unknown]

NARRATIVE: CASE EVENT DATE: 20160201
